FAERS Safety Report 8443249-3 (Version None)
Quarter: 2012Q2

REPORT INFORMATION
  Report Type: 
  Country: None (occurrence: None)
  Receive Date: 20120617
  Receipt Date: 20120605
  Transmission Date: 20120825
  Serious: Yes (Other)
  Sender: FDA-Public Use
  Company Number: NL-BRISTOL-MYERS SQUIBB COMPANY-16666570

PATIENT
  Age: 40 Year
  Sex: Female

DRUGS (3)
  1. MITOTANE [Suspect]
     Dosage: 1 DF : 2-3 TABS,2 YEARS
  2. HYDROCORTISONE [Suspect]
     Dosage: 1DF: 40-60MG
  3. FLUDROCORTISONE ACETATE [Suspect]
     Dosage: 1DF: 0.15-0.4MG

REACTIONS (2)
  - CEREBELLAR ATAXIA [None]
  - NERVOUS SYSTEM DISORDER [None]
